FAERS Safety Report 16452628 (Version 3)
Quarter: 2019Q4

REPORT INFORMATION
  Report Type: Report from Study
  Country: US (occurrence: US)
  Receive Date: 20190619
  Receipt Date: 20191119
  Transmission Date: 20200122
  Serious: No
  Sender: FDA-Public Use
  Company Number: US-SA-2019SA112179

PATIENT
  Age: 24 Year
  Sex: Male

DRUGS (1)
  1. ELIGLUSTAT. [Suspect]
     Active Substance: ELIGLUSTAT
     Indication: GAUCHER^S DISEASE
     Dosage: 84.0 2 PILLS/ DAY
     Route: 048
     Dates: start: 20150723

REACTIONS (2)
  - Somnolence [Recovered/Resolved]
  - Memory impairment [Unknown]
